FAERS Safety Report 8445578-6 (Version None)
Quarter: 2012Q2

REPORT INFORMATION
  Report Type: 
  Country: None (occurrence: None)
  Receive Date: 20120618
  Receipt Date: 20120606
  Transmission Date: 20120825
  Serious: No
  Sender: FDA-Public Use
  Company Number: US-ASTRAZENECA-2012SE20906

PATIENT
  Age: 49 Year
  Sex: Female

DRUGS (1)
  1. SEROQUEL XR [Suspect]
     Route: 048

REACTIONS (8)
  - DIARRHOEA [None]
  - COLD SWEAT [None]
  - PAIN IN EXTREMITY [None]
  - HOT FLUSH [None]
  - HYPERHIDROSIS [None]
  - DRUG DOSE OMISSION [None]
  - PANIC ATTACK [None]
  - NIGHTMARE [None]
